FAERS Safety Report 9895676 (Version 2)
Quarter: 2014Q1

REPORT INFORMATION
  Report Type: Spontaneous
  Country: US (occurrence: US)
  Receive Date: 20140213
  Receipt Date: 20140213
  Transmission Date: 20141002
  Serious: No
  Sender: FDA-Public Use
  Company Number: US-BRISTOL-MYERS SQUIBB COMPANY-18748988

PATIENT
  Age: 50 Year
  Sex: Female
  Weight: 56.69 kg

DRUGS (4)
  1. ORENCIA FOR INJ 250 MG/VIAL [Suspect]
     Indication: RHEUMATOID ARTHRITIS
     Dosage: DATE OF LAST INFUSION:  03APR2013
     Route: 042
     Dates: start: 2012
  2. HYDROCODONE [Concomitant]
     Dosage: 1DF:10/325MG TAKE 1 TAB EVERY 6 HOURS
  3. FLEXERIL [Concomitant]
     Dosage: 1 TAB EVERY NIGHT
  4. GABAPENTIN [Concomitant]

REACTIONS (4)
  - Weight increased [Not Recovered/Not Resolved]
  - Pain [Unknown]
  - Drug ineffective [Unknown]
  - General physical health deterioration [Unknown]
